FAERS Safety Report 21766963 (Version 2)
Quarter: 2023Q1

REPORT INFORMATION
  Report Type: Spontaneous
  Country: US (occurrence: US)
  Receive Date: 20221222
  Receipt Date: 20230111
  Transmission Date: 20230418
  Serious: Yes (Hospitalization)
  Sender: FDA-Public Use
  Company Number: US-TEVA-2022-US-2837372

PATIENT
  Age: 60 Year
  Sex: Male

DRUGS (3)
  1. WARFARIN [Suspect]
     Active Substance: WARFARIN
     Indication: Anticoagulant therapy
     Route: 048
  2. PHENYTOIN [Interacting]
     Active Substance: PHENYTOIN
     Indication: Seizure
     Route: 065
  3. ELIQUIS [Interacting]
     Active Substance: APIXABAN
     Indication: Anticoagulant therapy
     Dosage: 10 MILLIGRAM DAILY;
     Route: 048

REACTIONS (2)
  - Treatment failure [Unknown]
  - Drug interaction [Unknown]
